FAERS Safety Report 20483958 (Version 1)
Quarter: 2022Q1

REPORT INFORMATION
  Report Type: Spontaneous
  Country: US (occurrence: None)
  Receive Date: 20220216
  Receipt Date: 20220216
  Transmission Date: 20220423
  Serious: Yes (Other)
  Sender: FDA-Public Use
  Company Number: None

PATIENT
  Age: 45 Year
  Sex: Female
  Weight: 75.6 kg

DRUGS (2)
  1. GAMMAPLEX [Suspect]
     Active Substance: HUMAN IMMUNOGLOBULIN G
     Indication: Osteoporosis
     Dosage: OTHER FREQUENCY : WEEKLY;?
     Route: 042
  2. GAMMAPLEX [Suspect]
     Active Substance: HUMAN IMMUNOGLOBULIN G
     Indication: Osteoporosis
     Dosage: OTHER FREQUENCY : WEEKLY;?
     Route: 042

REACTIONS (4)
  - Nausea [None]
  - Abdominal pain [None]
  - Hypertension [None]
  - Hot flush [None]

NARRATIVE: CASE EVENT DATE: 20220208
